FAERS Safety Report 5963253-4 (Version None)
Quarter: 2008Q4

REPORT INFORMATION
  Report Type: 
  Country: None (occurrence: None)
  Receive Date: 20081124
  Receipt Date: 20081119
  Transmission Date: 20090506
  Serious: Yes (Other)
  Sender: FDA-Public Use
  Company Number: GB-ROCHE-596051

PATIENT
  Sex: Female

DRUGS (2)
  1. ORLISTAT [Suspect]
     Indication: OBESITY
     Route: 048
     Dates: start: 20080409, end: 20081018
  2. ORLISTAT [Suspect]
     Route: 048
     Dates: start: 20081104

REACTIONS (2)
  - GASTROENTERITIS [None]
  - PLANTAR FASCIITIS [None]
